FAERS Safety Report 13582992 (Version 4)
Quarter: 2017Q4

REPORT INFORMATION
  Report Type: Report from Study
  Country: US (occurrence: US)
  Receive Date: 20170525
  Receipt Date: 20171220
  Transmission Date: 20180320
  Serious: Yes (Death, Hospitalization)
  Sender: FDA-Public Use
  Company Number: US-ACTELION-A-US2016-139313

PATIENT
  Age: 74 Year
  Sex: Female
  Weight: 77.98 kg

DRUGS (4)
  1. VELETRI [Suspect]
     Active Substance: EPOPROSTENOL
     Dosage: 20 NG/KG, PER MIN
     Route: 042
  2. ESBRIET [Concomitant]
     Active Substance: PIRFENIDONE
  3. VELETRI [Suspect]
     Active Substance: EPOPROSTENOL
     Indication: PULMONARY ARTERIAL HYPERTENSION
     Dosage: 8 NG/KG, PER MIN
     Route: 042
     Dates: start: 20160624
  4. ADCIRCA [Concomitant]
     Active Substance: TADALAFIL

REACTIONS (22)
  - Interstitial lung disease [Fatal]
  - Pneumonia [Unknown]
  - Respiratory distress [Unknown]
  - Diarrhoea [Unknown]
  - Rheumatoid arthritis [Unknown]
  - Acute respiratory failure [Unknown]
  - Dermatitis contact [Unknown]
  - Cardio-respiratory arrest [Fatal]
  - Dyspnoea [Unknown]
  - Hypoxia [Unknown]
  - Body temperature decreased [Unknown]
  - Somnolence [Unknown]
  - Shock [Fatal]
  - Urinary tract infection [Unknown]
  - Oedema peripheral [Unknown]
  - Herpes zoster [Unknown]
  - Feeling cold [Unknown]
  - Decreased appetite [Unknown]
  - Catheter site erythema [Unknown]
  - Hypotension [Unknown]
  - Peripheral swelling [Unknown]
  - Catheter site pruritus [Unknown]
